FAERS Safety Report 22929923 (Version 5)
Quarter: 2025Q2

REPORT INFORMATION
  Report Type: Report from Study
  Country: JP (occurrence: JP)
  Receive Date: 20230911
  Receipt Date: 20250425
  Transmission Date: 20250717
  Serious: Yes (Hospitalization, Other)
  Sender: EXELIXIS
  Company Number: JP-EXELIXIS-CABO-23068040

PATIENT
  Age: 79 Year
  Sex: Female
  Weight: 54.1 kg

DRUGS (17)
  1. CABOMETYX [Suspect]
     Active Substance: CABOZANTINIB S-MALATE
     Indication: Renal cell carcinoma
     Route: 048
     Dates: start: 20230802, end: 20230821
  2. CABOMETYX [Suspect]
     Active Substance: CABOZANTINIB S-MALATE
     Route: 048
     Dates: start: 20230920, end: 20230927
  3. CABOMETYX [Suspect]
     Active Substance: CABOZANTINIB S-MALATE
     Route: 048
     Dates: start: 20240109, end: 20240130
  4. CABOMETYX [Suspect]
     Active Substance: CABOZANTINIB S-MALATE
     Route: 048
     Dates: start: 20240213, end: 20240411
  5. CABOMETYX [Suspect]
     Active Substance: CABOZANTINIB S-MALATE
     Route: 065
     Dates: start: 20240612, end: 20250318
  6. NIVOLUMAB [Suspect]
     Active Substance: NIVOLUMAB
     Indication: Renal cell carcinoma
     Route: 065
     Dates: start: 20230801, end: 20230815
  7. AMOXICILLIN [Suspect]
     Active Substance: AMOXICILLIN
     Indication: Periodontitis
     Route: 065
     Dates: start: 20230810
  8. AMOXICILLIN [Suspect]
     Active Substance: AMOXICILLIN
     Route: 065
     Dates: start: 20230926, end: 20230927
  9. CORTRIL [Suspect]
     Active Substance: HYDROCORTISONE
     Indication: Adrenal insufficiency
     Route: 048
     Dates: start: 20231120, end: 20231122
  10. CORTRIL [Suspect]
     Active Substance: HYDROCORTISONE
     Route: 048
     Dates: start: 20231123, end: 20231125
  11. CORTRIL [Suspect]
     Active Substance: HYDROCORTISONE
     Route: 048
     Dates: start: 20231126
  12. CORTRIL [Suspect]
     Active Substance: HYDROCORTISONE
     Route: 048
     Dates: start: 20240411, end: 20240414
  13. CORTRIL [Suspect]
     Active Substance: HYDROCORTISONE
     Route: 048
     Dates: start: 20240415
  14. CORTRIL [Suspect]
     Active Substance: HYDROCORTISONE
     Route: 048
     Dates: start: 20250412, end: 20250412
  15. CORTRIL [Suspect]
     Active Substance: HYDROCORTISONE
     Route: 048
     Dates: start: 20250413, end: 20250414
  16. CORTRIL [Suspect]
     Active Substance: HYDROCORTISONE
     Route: 048
     Dates: start: 20250415
  17. CLARITHROMYCIN [Concomitant]
     Active Substance: CLARITHROMYCIN
     Indication: Periodontitis
     Route: 065
     Dates: start: 20231031, end: 20231105

REACTIONS (12)
  - Erythema multiforme [Recovered/Resolved]
  - Adrenal insufficiency [Recovering/Resolving]
  - Adrenal insufficiency [Recovering/Resolving]
  - Adrenal insufficiency [Recovering/Resolving]
  - Enteritis infectious [Recovered/Resolved]
  - Pyrexia [Recovered/Resolved]
  - Malaise [Recovered/Resolved]
  - Malaise [Unknown]
  - Pruritus [Recovered/Resolved]
  - Diarrhoea [Recovered/Resolved]
  - Diarrhoea [Unknown]
  - Decreased appetite [Unknown]

NARRATIVE: CASE EVENT DATE: 20230822
